FAERS Safety Report 23236753 (Version 1)
Quarter: 2023Q4

REPORT INFORMATION
  Report Type: Spontaneous
  Country: JP (occurrence: JP)
  Receive Date: 20231128
  Receipt Date: 20231128
  Transmission Date: 20240109
  Serious: Yes (Hospitalization, Other)
  Sender: FDA-Public Use
  Company Number: JP-PFIZER INC-PV202300191315

PATIENT
  Age: 65 Year
  Sex: Male

DRUGS (3)
  1. PAXLOVID [Suspect]
     Active Substance: NIRMATRELVIR\RITONAVIR
     Indication: COVID-19 treatment
     Dosage: NINE COURSES (BETWEEN DAYS 29 AND 43, 46 AND 50,91 AND 104, 150 AND 154, AND 185 AND 189)
     Route: 048
     Dates: start: 2022, end: 2022
  2. SOTROVIMAB [Suspect]
     Active Substance: SOTROVIMAB
     Indication: COVID-19
     Dosage: TWELVE DOSES( (ON DAYS 0, 27, 30, 32, 34, 38, 46, 49, 101, 150 AND 185)
     Dates: start: 2022, end: 2022
  3. REMDESIVIR [Suspect]
     Active Substance: REMDESIVIR
     Indication: COVID-19
     Dosage: FOUR DOSES (BETWEEN DAYS 14 AND 23, 105 AND 114, 143 AND 150, AND 175 AND 181)
     Dates: start: 2022, end: 2022

REACTIONS (2)
  - Drug ineffective for unapproved indication [Unknown]
  - Off label use [Unknown]
